FAERS Safety Report 4800237-3 (Version None)
Quarter: 2005Q4

REPORT INFORMATION
  Report Type: 
  Country: None (occurrence: None)
  Receive Date: 20051017
  Receipt Date: 20051004
  Transmission Date: 20060501
  Serious: Yes (Other)
  Sender: FDA-Public Use
  Company Number: 2005AC01582

PATIENT
  Age: 55 Year
  Sex: Male

DRUGS (3)
  1. BUPIVACAINE [Suspect]
     Indication: SPINAL ANAESTHESIA
     Dosage: SPINAL-EPIDURAL TECHNIQUE
     Route: 037
  2. MICLAZOLAM [Concomitant]
     Indication: SEDATIVE THERAPY
     Route: 042
  3. DROPERIDOL [Concomitant]
     Indication: NAUSEA
     Route: 042

REACTIONS (1)
  - SLEEP APNOEA SYNDROME [None]
